FAERS Safety Report 14771395 (Version 1)
Quarter: 2018Q2

REPORT INFORMATION
  Report Type: Spontaneous
  Country: US (occurrence: US)
  Receive Date: 20180417
  Receipt Date: 20180417
  Transmission Date: 20180711
  Serious: No
  Sender: FDA-Public Use
  Company Number: US-ALLERGAN-1732931US

PATIENT
  Sex: Female

DRUGS (1)
  1. LATISSE [Suspect]
     Active Substance: BIMATOPROST
     Indication: GROWTH OF EYELASHES
     Dosage: 2 TO 3 DROPS, QPM
     Route: 061
     Dates: start: 201707

REACTIONS (3)
  - Wrong technique in product usage process [Unknown]
  - Incorrect dosage administered [Unknown]
  - Drug effect delayed [Unknown]
